FAERS Safety Report 7818047-1 (Version None)
Quarter: 2011Q4

REPORT INFORMATION
  Report Type: 
  Country: None (occurrence: None)
  Receive Date: 20111017
  Receipt Date: 20110722
  Transmission Date: 20120403
  Serious: Yes (Other)
  Sender: FDA-Public Use
  Company Number: US-B.I. PHARMACEUTICALS,INC./RIDGEFIELD-2011-BP-16594BP

PATIENT
  Age: 61 Year
  Sex: Male

DRUGS (4)
  1. METOPROLOL TARTRATE [Concomitant]
     Indication: HYPERTENSION
     Dosage: 50 MG
     Dates: start: 20090101
  2. ASPIRIN [Concomitant]
  3. PRADAXA [Suspect]
     Indication: ATRIAL FIBRILLATION
     Dosage: 300 MG
     Route: 048
     Dates: start: 20110611
  4. PRILOSEC [Concomitant]

REACTIONS (6)
  - HYPOAESTHESIA [None]
  - PARAESTHESIA [None]
  - DYSPEPSIA [None]
  - HYPOAESTHESIA ORAL [None]
  - TRANSIENT ISCHAEMIC ATTACK [None]
  - DIZZINESS [None]
